FAERS Safety Report 8379649-X (Version None)
Quarter: 2012Q2

REPORT INFORMATION
  Report Type: 
  Country: None (occurrence: None)
  Receive Date: 20120523
  Receipt Date: 20120517
  Transmission Date: 20120825
  Serious: Yes (Hospitalization)
  Sender: FDA-Public Use
  Company Number: US-BAYER-2012-043774

PATIENT
  Age: 33 Year
  Sex: Female
  Weight: 82.086 kg

DRUGS (8)
  1. ACETAMINOPHEN AND OXYCODONE HCL [Concomitant]
  2. MAXALT [Concomitant]
     Dosage: UNK
     Route: 048
  3. MIDRIN [Concomitant]
     Dosage: UNK
     Route: 048
  4. MINOCYCLINE HCL [Concomitant]
     Dosage: 100 MG, UNK
  5. METRONIDAZOLE [Concomitant]
     Dosage: 500 MG, BID
     Route: 048
     Dates: start: 20060717
  6. PAXIL CR [Concomitant]
     Dosage: 12.5 MG, UNK
  7. MULTI-VITAMINS [Concomitant]
     Dosage: UNK
     Route: 048
  8. YAZ [Suspect]

REACTIONS (1)
  - PULMONARY EMBOLISM [None]
